FAERS Safety Report 24969116 (Version 1)
Quarter: 2025Q1

REPORT INFORMATION
  Report Type: Spontaneous
  Country: US (occurrence: US)
  Receive Date: 20250214
  Receipt Date: 20250214
  Transmission Date: 20250409
  Serious: No
  Sender: AMNEAL
  Company Number: US-AMNEAL PHARMACEUTICALS-2024-AMRX-00464

PATIENT
  Age: 68 Year
  Sex: Female
  Weight: 63.492 kg

DRUGS (1)
  1. RYTARY [Suspect]
     Active Substance: CARBIDOPA\LEVODOPA
     Indication: Parkinson^s disease
     Dosage: 1 CAPSULES (61.25-245MG), 4 /DAY
     Route: 048

REACTIONS (3)
  - Tremor [Unknown]
  - Product dose omission issue [Unknown]
  - Product use issue [None]

NARRATIVE: CASE EVENT DATE: 20240111
